FAERS Safety Report 7938981-1 (Version None)
Quarter: 2011Q4

REPORT INFORMATION
  Report Type: 
  Country: None (occurrence: None)
  Receive Date: 20111124
  Receipt Date: 20111121
  Transmission Date: 20120403
  Serious: No
  Sender: FDA-Public Use
  Company Number: US-PFIZER INC-2011285648

PATIENT

DRUGS (2)
  1. CELEBREX [Suspect]
     Indication: OSTEOARTHRITIS
     Dosage: 200 MG, UNK
  2. CORTISONE ACETATE [Suspect]
     Indication: OSTEOARTHRITIS
     Dosage: UNK

REACTIONS (2)
  - PAIN [None]
  - DISCOMFORT [None]
